FAERS Safety Report 5414826-9 (Version None)
Quarter: 2007Q3

REPORT INFORMATION
  Report Type: 
  Country: None (occurrence: None)
  Receive Date: 20070813
  Receipt Date: 20070813
  Transmission Date: 20080115
  Serious: No
  Sender: FDA-Public Use
  Company Number: None

PATIENT
  Sex: Female
  Weight: 96.8 kg

DRUGS (15)
  1. THYMOGLOBULIN [Suspect]
     Indication: APLASTIC ANAEMIA
     Dosage: 350MG Q24? IVPB
     Route: 042
     Dates: start: 20070224, end: 20070226
  2. THYMOGLOBULIN [Suspect]
     Indication: APLASTIC ANAEMIA
     Dosage: 350MG Q24? IVPB
     Route: 042
     Dates: start: 20070302, end: 20070303
  3. THYMOGLOBULIN [Suspect]
     Indication: STEM CELL TRANSPLANT
     Dosage: 100MG Q24? IVPB
     Route: 042
     Dates: start: 20070610, end: 20070613
  4. ACYCLOVIR [Concomitant]
  5. NEUPOGEN [Concomitant]
  6. FLUCONAZOLE [Concomitant]
  7. SOLU-MEDROL [Concomitant]
  8. AMICAR [Concomitant]
  9. CEFEPIME [Concomitant]
  10. CYCLOSPORINE [Concomitant]
  11. REGULAR INSULIN [Concomitant]
  12. ATOVAQUONE [Concomitant]
  13. IMIPENEM [Concomitant]
  14. VANCOMYCIN [Concomitant]
  15. URSODIOL [Concomitant]

REACTIONS (3)
  - BLOOD PRESSURE DIASTOLIC DECREASED [None]
  - BLOOD PRESSURE SYSTOLIC INCREASED [None]
  - BRADYCARDIA [None]
